FAERS Safety Report 10569858 (Version 2)
Quarter: 2014Q4

REPORT INFORMATION
  Report Type: Spontaneous
  Country: CH (occurrence: CH)
  Receive Date: 20141107
  Receipt Date: 20141118
  Transmission Date: 20150529
  Serious: Yes (Other)
  Sender: FDA-Public Use
  Company Number: CH-009507513-1411CHE000152

PATIENT
  Age: 73 Year
  Sex: Female

DRUGS (7)
  1. LOSARTAN POTASSIUM. [Suspect]
     Active Substance: LOSARTAN POTASSIUM
     Dosage: UNKNOWN AMOUNT OF, ONCE
     Route: 048
     Dates: start: 20140104, end: 20140104
  2. AMLODIPINE [Suspect]
     Active Substance: AMLODIPINE BESYLATE
     Dosage: 160 MG, ONCE
     Route: 048
  3. LORAZEPAM. [Suspect]
     Active Substance: LORAZEPAM
     Dosage: UNKNOWN AMOUNT OF, ONCE
     Route: 048
     Dates: start: 20140104, end: 20140104
  4. ATENOLOL. [Suspect]
     Active Substance: ATENOLOL
     Dosage: 625 MG, ONCE
     Route: 048
     Dates: start: 20140104, end: 20140104
  5. COZAAR [Suspect]
     Active Substance: LOSARTAN POTASSIUM
     Dosage: 40 TABLETS, TOTAL DAILY DOSE 4000MG, ONCE
     Route: 048
     Dates: start: 20140104, end: 20140104
  6. ZOLPIDEM TARTRATE. [Suspect]
     Active Substance: ZOLPIDEM TARTRATE
     Dosage: UNKNOWN AMOUNT OF, ONCE
     Route: 048
  7. GABAPENTIN. [Suspect]
     Active Substance: GABAPENTIN
     Dosage: UNKNOWN MOUNT OF, ONCE
     Route: 048

REACTIONS (3)
  - Suicide attempt [Recovered/Resolved]
  - Hypotension [Recovered/Resolved]
  - Overdose [Unknown]

NARRATIVE: CASE EVENT DATE: 20140104
